FAERS Safety Report 24991291 (Version 1)
Quarter: 2025Q1

REPORT INFORMATION
  Report Type: Spontaneous
  Country: US (occurrence: US)
  Receive Date: 20250220
  Receipt Date: 20250220
  Transmission Date: 20250408
  Serious: Yes (Other)
  Sender: TAKEDA
  Company Number: US-TAKEDA-2025TUS016867

PATIENT

DRUGS (3)
  1. VYVANSE [Suspect]
     Active Substance: LISDEXAMFETAMINE DIMESYLATE
     Indication: Attention deficit hyperactivity disorder
     Dosage: 100 MILLIGRAM, QD
  2. FOCALIN [Suspect]
     Active Substance: DEXMETHYLPHENIDATE HYDROCHLORIDE
     Indication: Product used for unknown indication
  3. RITALIN [Suspect]
     Active Substance: METHYLPHENIDATE HYDROCHLORIDE
     Indication: Product used for unknown indication

REACTIONS (14)
  - Epilepsy [Unknown]
  - Seizure [Unknown]
  - Burning sensation [Unknown]
  - Emotional disorder [Unknown]
  - Attention deficit hyperactivity disorder [Unknown]
  - Nervousness [Unknown]
  - Migraine [Unknown]
  - Discouragement [Unknown]
  - Drug ineffective [Unknown]
  - Impulsive behaviour [Unknown]
  - Fall [Unknown]
  - Head injury [Unknown]
  - Anxiety [Unknown]
  - Nausea [Unknown]
